FAERS Safety Report 14942209 (Version 2)
Quarter: 2018Q3

REPORT INFORMATION
  Report Type: Report from Study
  Country: None (occurrence: ES)
  Receive Date: 20180528
  Receipt Date: 20180906
  Transmission Date: 20181010
  Serious: Yes (Other)
  Sender: FDA-Public Use
  Company Number: ES-ABBVIE-18K-144-2367925-00

PATIENT
  Age: 50 Year
  Sex: Male
  Weight: 78 kg

DRUGS (4)
  1. HUMIRA [Suspect]
     Active Substance: ADALIMUMAB
     Indication: SPONDYLITIS
     Route: 058
     Dates: start: 20160121
  2. RISEDRONATE [Concomitant]
     Active Substance: RISEDRONATE SODIUM
     Indication: SPONDYLITIS
     Route: 048
  3. IDEOS (CALCIUM, COLECALCIFEROL) [Concomitant]
     Indication: SPONDYLITIS
     Route: 048
  4. HUMIRA [Suspect]
     Active Substance: ADALIMUMAB
     Indication: SPONDYLITIS
     Route: 058
     Dates: end: 201803

REACTIONS (4)
  - Localised oedema [Not Recovered/Not Resolved]
  - Blood growth hormone abnormal [Unknown]
  - Pituitary tumour [Recovered/Resolved]
  - Cortisol abnormal [Unknown]

NARRATIVE: CASE EVENT DATE: 201803
